FAERS Safety Report 8810679 (Version 5)
Quarter: 2014Q2

REPORT INFORMATION
  Report Type: Spontaneous
  Country: US (occurrence: None)
  Receive Date: 20120920
  Receipt Date: 20140514
  Transmission Date: 20141212
  Serious: Yes (Other)
  Sender: FDA-Public Use
  Company Number: ADR-2012-01719

PATIENT
  Sex: Female

DRUGS (2)
  1. GABLOFEN [Suspect]
     Indication: MUSCLE SPASTICITY
     Dosage: SEE B5
     Dates: start: 20110613
  2. BACLOFEN [Suspect]
     Dosage: UNKNOWN?

REACTIONS (20)
  - Dysstasia [None]
  - Gait disturbance [None]
  - Faecal incontinence [None]
  - Urinary incontinence [None]
  - Asthenia [None]
  - Muscle spasticity [None]
  - Unevaluable event [None]
  - Drug effect decreased [None]
  - Muscular weakness [None]
  - Limb discomfort [None]
  - Walking aid user [None]
  - Insomnia [None]
  - Bladder disorder [None]
  - Functional gastrointestinal disorder [None]
  - Gait disturbance [None]
  - Device dislocation [None]
  - Device breakage [None]
  - Therapeutic response decreased [None]
  - Muscle spasticity [None]
  - Device dislocation [None]
